FAERS Safety Report 14995348 (Version 4)
Quarter: 2020Q4

REPORT INFORMATION
  Report Type: Other
  Country: CA (occurrence: CA)
  Receive Date: 20180611
  Receipt Date: 20201231
  Transmission Date: 20210113
  Serious: Yes (Hospitalization, Congenital Anomaly, Other)
  Sender: FDA-Public Use
  Company Number: CA-APOTEX-2018AP015309

PATIENT
  Age: 96 Year
  Sex: Female

DRUGS (48)
  1. LATANOPROST. [Suspect]
     Active Substance: LATANOPROST
     Indication: PRODUCT USED FOR UNKNOWN INDICATION
     Dosage: UNK
     Route: 065
  2. MOGADON [Suspect]
     Active Substance: NITRAZEPAM
     Indication: PRODUCT USED FOR UNKNOWN INDICATION
     Dosage: UNK
     Route: 065
  3. SALBUTAMOL [Suspect]
     Active Substance: ALBUTEROL
     Indication: PRODUCT USED FOR UNKNOWN INDICATION
     Dosage: UNK
     Route: 065
  4. XALATAN [Suspect]
     Active Substance: LATANOPROST
     Indication: PRODUCT USED FOR UNKNOWN INDICATION
     Dosage: UNK
     Route: 047
  5. CICLESONIDE [Suspect]
     Active Substance: CICLESONIDE
     Indication: PRODUCT USED FOR UNKNOWN INDICATION
     Dosage: UNK
     Route: 045
  6. NITRAZEPAM [Suspect]
     Active Substance: NITRAZEPAM
     Indication: PRODUCT USED FOR UNKNOWN INDICATION
     Dosage: UNK
     Route: 065
  7. TECTA [Suspect]
     Active Substance: PANTOPRAZOLE MAGNESIUM
     Indication: PRODUCT USED FOR UNKNOWN INDICATION
     Dosage: 40 MILLIGRAM, QD
     Route: 065
  8. XALATAN [Suspect]
     Active Substance: LATANOPROST
     Dosage: UNK
     Route: 065
  9. PILOCARPINE NITRATE [Suspect]
     Active Substance: PILOCARPINE NITRATE
     Indication: PRODUCT USED FOR UNKNOWN INDICATION
     Dosage: UNK
     Route: 065
  10. SANDOZ METFORMIN FC [Suspect]
     Active Substance: METFORMIN HYDROCHLORIDE
     Indication: PRODUCT USED FOR UNKNOWN INDICATION
     Dosage: UNK
     Route: 065
  11. FORMOTEROL FUMARATE [Suspect]
     Active Substance: FORMOTEROL FUMARATE
     Dosage: UNK UNK, Q.O.D.
     Route: 050
  12. NITROGLYCERIN. [Suspect]
     Active Substance: NITROGLYCERIN
     Dosage: UNK
     Route: 065
  13. NITROGLYCERIN. [Suspect]
     Active Substance: NITROGLYCERIN
     Indication: PRODUCT USED FOR UNKNOWN INDICATION
     Dosage: UNK
     Route: 065
  14. NITROJECT [Suspect]
     Active Substance: NITROGLYCERIN
     Indication: PRODUCT USED FOR UNKNOWN INDICATION
     Dosage: UNK
     Route: 042
  15. SYNTHROID [Suspect]
     Active Substance: LEVOTHYROXINE SODIUM
     Indication: PRODUCT USED FOR UNKNOWN INDICATION
     Dosage: UNK
     Route: 042
  16. ACLIDINIUM BROMIDE. [Suspect]
     Active Substance: ACLIDINIUM BROMIDE
     Dosage: UNK
     Route: 050
  17. GLYCOPYRRONIUM BROMIDE [Suspect]
     Active Substance: GLYCOPYRRONIUM
     Dosage: UNK
     Route: 050
  18. BECLOMETHASONE [Suspect]
     Active Substance: BECLOMETHASONE
     Indication: PRODUCT USED FOR UNKNOWN INDICATION
     Dosage: UNK
     Route: 065
  19. MOGADON [Suspect]
     Active Substance: NITRAZEPAM
     Dosage: 5 MILLIGRAM
     Route: 065
  20. BETAXOLOL HCL [Suspect]
     Active Substance: BETAXOLOL HYDROCHLORIDE
     Indication: PRODUCT USED FOR UNKNOWN INDICATION
     Dosage: UNK
     Route: 065
  21. OMNARIS [Suspect]
     Active Substance: CICLESONIDE
     Indication: PRODUCT USED FOR UNKNOWN INDICATION
     Dosage: UNK
     Route: 045
  22. QVAR [Suspect]
     Active Substance: BECLOMETHASONE DIPROPIONATE
     Indication: PRODUCT USED FOR UNKNOWN INDICATION
     Dosage: 2 DF, BID
  23. QVAR [Suspect]
     Active Substance: BECLOMETHASONE DIPROPIONATE
     Dosage: 2 DOSAGE FORM, QD
     Route: 050
  24. QVAR [Suspect]
     Active Substance: BECLOMETHASONE DIPROPIONATE
     Dosage: UNK
     Route: 050
  25. FORMOTEROL [Suspect]
     Active Substance: FORMOTEROL
     Dosage: 2 DOSAGE FORM, QD
     Route: 065
  26. ACLIDINIUM BROMIDE. [Suspect]
     Active Substance: ACLIDINIUM BROMIDE
     Indication: PRODUCT USED FOR UNKNOWN INDICATION
     Dosage: UNK
  27. GLYCOPYRRONIUM BROMIDE [Suspect]
     Active Substance: GLYCOPYRRONIUM
     Indication: PRODUCT USED FOR UNKNOWN INDICATION
     Dosage: UNK
     Route: 042
  28. MINITRAN [Suspect]
     Active Substance: NITROGLYCERIN
     Indication: PRODUCT USED FOR UNKNOWN INDICATION
     Dosage: UNK
     Route: 065
  29. LEVOTHYROXINE. [Concomitant]
     Active Substance: LEVOTHYROXINE
     Indication: PRODUCT USED FOR UNKNOWN INDICATION
     Dosage: 0.125 MILLIGRAM, QD
     Route: 065
  30. ZOCOR [Concomitant]
     Active Substance: SIMVASTATIN
     Indication: PRODUCT USED FOR UNKNOWN INDICATION
     Dosage: 20 MILLIGRAM
     Route: 065
  31. NITRAZEPAM [Concomitant]
     Active Substance: NITRAZEPAM
     Indication: PRODUCT USED FOR UNKNOWN INDICATION
     Dosage: UNK
     Route: 065
  32. ATOCK [Suspect]
     Active Substance: FORMOTEROL FUMARATE
     Indication: PRODUCT USED FOR UNKNOWN INDICATION
     Dosage: 1 DOSAGE FORM, BID
     Route: 065
  33. PILOCARPINE HCL [Suspect]
     Active Substance: PILOCARPINE HYDROCHLORIDE
     Indication: PRODUCT USED FOR UNKNOWN INDICATION
     Dosage: UNK
     Route: 065
  34. PANTOPRAZOLE MAGNESIUM [Suspect]
     Active Substance: PANTOPRAZOLE MAGNESIUM
     Indication: PRODUCT USED FOR UNKNOWN INDICATION
     Dosage: UNK
     Route: 065
  35. PILOCARPINE HCL [Suspect]
     Active Substance: PILOCARPINE HYDROCHLORIDE
     Indication: PRODUCT USED FOR UNKNOWN INDICATION
     Dosage: 40 MILLIGRAM, QD
     Route: 065
  36. METFORMIN [Concomitant]
     Active Substance: METFORMIN HYDROCHLORIDE
     Indication: PRODUCT USED FOR UNKNOWN INDICATION
     Dosage: UNK
     Route: 065
  37. METFORMIN [Suspect]
     Active Substance: METFORMIN HYDROCHLORIDE
     Indication: PRODUCT USED FOR UNKNOWN INDICATION
     Dosage: UNK
     Route: 065
  38. FORMOTEROL [Suspect]
     Active Substance: FORMOTEROL
     Indication: PRODUCT USED FOR UNKNOWN INDICATION
     Dosage: 1 DOSAGE FORM, BID
     Route: 050
  39. GLUMETZA [Suspect]
     Active Substance: METFORMIN HYDROCHLORIDE
     Indication: PRODUCT USED FOR UNKNOWN INDICATION
     Dosage: UNK
     Route: 065
  40. GLYCON [GLICLAZIDE] [Suspect]
     Active Substance: GLICLAZIDE
     Indication: PRODUCT USED FOR UNKNOWN INDICATION
     Dosage: UNK
     Route: 065
  41. GLYCOPYRRONIUM BROMIDE;INDACATEROL MALEATE [Suspect]
     Active Substance: GLYCOPYRROLATE\INDACATEROL MALEATE
     Indication: PRODUCT USED FOR UNKNOWN INDICATION
     Dosage: UNK
     Route: 042
  42. NUCALA [Suspect]
     Active Substance: MEPOLIZUMAB
     Indication: ASTHMA
     Dosage: 100 MILLIGRAM, QD
     Route: 042
  43. GLYCERYL TRINITRATE [Suspect]
     Active Substance: NITROGLYCERIN
     Indication: PRODUCT USED FOR UNKNOWN INDICATION
     Dosage: UNK
     Route: 065
  44. FORMOTEROL FUMARATE [Suspect]
     Active Substance: FORMOTEROL FUMARATE
     Dosage: UNK
     Route: 050
  45. ZOCOR [Concomitant]
     Active Substance: SIMVASTATIN
     Dosage: UNK
     Route: 065
  46. NITROGLYCERIN. [Suspect]
     Active Substance: NITROGLYCERIN
     Indication: PRODUCT USED FOR UNKNOWN INDICATION
     Dosage: UNK
     Route: 042
  47. LEVOTHYROXINE. [Suspect]
     Active Substance: LEVOTHYROXINE
     Indication: PRODUCT USED FOR UNKNOWN INDICATION
     Dosage: UNK
     Route: 065
  48. FORMOTEROL FUMARATE [Suspect]
     Active Substance: FORMOTEROL FUMARATE
     Indication: PRODUCT USED FOR UNKNOWN INDICATION
     Dosage: UNK UNK, BID
     Route: 045

REACTIONS (31)
  - Productive cough [Recovering/Resolving]
  - Limb injury [Recovering/Resolving]
  - Peripheral vascular disorder [Recovering/Resolving]
  - Pulmonary congestion [Recovering/Resolving]
  - Coronary artery disease [Recovering/Resolving]
  - Fall [Recovering/Resolving]
  - Glaucoma [Recovering/Resolving]
  - Pulmonary oedema [Recovering/Resolving]
  - Urinary retention [Recovering/Resolving]
  - Weight increased [Recovering/Resolving]
  - Dyspnoea [Recovering/Resolving]
  - Adverse drug reaction [Recovering/Resolving]
  - Cardiac failure congestive [Recovering/Resolving]
  - Chest discomfort [Recovering/Resolving]
  - Dizziness [Recovering/Resolving]
  - Asthma [Recovering/Resolving]
  - Tachycardia [Recovering/Resolving]
  - Wound [Recovering/Resolving]
  - Crepitations [Recovering/Resolving]
  - Haemorrhage [Recovering/Resolving]
  - Cough [Recovering/Resolving]
  - Oedema peripheral [Recovering/Resolving]
  - Therapeutic product effect incomplete [Recovering/Resolving]
  - Angioplasty [Recovering/Resolving]
  - Sputum discoloured [Recovering/Resolving]
  - Myocardial infarction [Unknown]
  - Acute myocardial infarction [Recovering/Resolving]
  - Pulmonary embolism [Recovering/Resolving]
  - Wheezing [Recovering/Resolving]
  - Choking [Recovering/Resolving]
  - Transient ischaemic attack [Recovering/Resolving]
